FAERS Safety Report 5932277-5 (Version None)
Quarter: 2008Q4

REPORT INFORMATION
  Report Type: 
  Country: None (occurrence: None)
  Receive Date: 20081023
  Receipt Date: 20081013
  Transmission Date: 20090506
  Serious: Yes (Other)
  Sender: FDA-Public Use
  Company Number: 100#08#2008-04716

PATIENT
  Age: 5 Year
  Sex: Male

DRUGS (3)
  1. THEOPHYLLINE [Suspect]
     Indication: DRUG USE FOR UNKNOWN INDICATION
     Dosage: 240 MG TWICE ORAL
     Route: 048
  2. TULOBUTERAL  HYDROCHLORIDE (TULOBUTERAL HYDROCHLORIDE) [Concomitant]
  3. PRANLUKAST HYDRATE (PRANLUKAST HYDRATE) [Concomitant]

REACTIONS (25)
  - ABDOMINAL PAIN [None]
  - BLOOD LACTIC ACID INCREASED [None]
  - BLOOD PYRUVIC ACID INCREASED [None]
  - BODY TEMPERATURE DECREASED [None]
  - CYANOSIS [None]
  - DYSPNOEA [None]
  - GAZE PALSY [None]
  - GRAND MAL CONVULSION [None]
  - HEART RATE INCREASED [None]
  - HYPOREFLEXIA [None]
  - HYPOVENTILATION [None]
  - INCONTINENCE [None]
  - LOSS OF CONSCIOUSNESS [None]
  - MYOCLONUS [None]
  - MYOTONIA [None]
  - OXYGEN SATURATION DECREASED [None]
  - PUPIL FIXED [None]
  - PUPILLARY LIGHT REFLEX TESTS ABNORMAL [None]
  - RESPIRATORY ACIDOSIS [None]
  - RESPIRATORY RATE INCREASED [None]
  - STATUS EPILEPTICUS [None]
  - TACHYCARDIA [None]
  - UNRESPONSIVE TO STIMULI [None]
  - VOMITING [None]
  - WHEEZING [None]
